FAERS Safety Report 5101502-5 (Version None)
Quarter: 2006Q3

REPORT INFORMATION
  Report Type: 
  Country: None (occurrence: None)
  Receive Date: 20060911
  Receipt Date: 20060901
  Transmission Date: 20061208
  Serious: Yes (Hospitalization)
  Sender: FDA-Public Use
  Company Number: 2006AP04087

PATIENT
  Age: 32 Year
  Sex: Male

DRUGS (3)
  1. SEROQUEL [Suspect]
     Indication: SCHIZOPHRENIA
     Route: 048
  2. DEPAS [Concomitant]
     Route: 048
  3. VEGETAMIN [Concomitant]
     Route: 048

REACTIONS (2)
  - HEAT STROKE [None]
  - RENAL FAILURE ACUTE [None]
